FAERS Safety Report 18200763 (Version 2)
Quarter: 2020Q3

REPORT INFORMATION
  Report Type: Spontaneous
  Country: US (occurrence: US)
  Receive Date: 20200827
  Receipt Date: 20200903
  Transmission Date: 20201103
  Serious: No
  Sender: FDA-Public Use
  Company Number: US-JNJFOC-20200835957

PATIENT
  Age: 55 Year
  Sex: Male
  Weight: 99.88 kg

DRUGS (1)
  1. PEPCID COMPLETE [Suspect]
     Active Substance: CALCIUM CARBONATE\FAMOTIDINE\MAGNESIUM HYDROXIDE
     Indication: DYSPEPSIA
     Dosage: COUPLE IN THE MORNING AND 2 LATER IN THE EVENING 2 ? 3 TIMES A DAY?DATE OF LAST ADMIN: 21/AUG/2020
     Route: 048
     Dates: start: 20200812

REACTIONS (1)
  - Overdose [Unknown]
